FAERS Safety Report 9639841 (Version 1)
Quarter: 2013Q4

REPORT INFORMATION
  Report Type: Spontaneous
  Country: US (occurrence: US)
  Receive Date: 20131023
  Receipt Date: 20131023
  Transmission Date: 20140711
  Serious: Yes (Hospitalization)
  Sender: FDA-Public Use
  Company Number: US-SA-2013SA105323

PATIENT
  Age: 60 Year
  Sex: Female

DRUGS (4)
  1. LANTUS SOLOSTAR [Suspect]
     Dosage: DOSAGE - 35-40 UNITS
     Route: 051
  2. APIDRA SOLOSTAR [Suspect]
     Dosage: DOSAGE - 10-12 UNITS?FREQUENCY - BEFORE EACH MEAL
     Route: 058
  3. SOLOSTAR [Concomitant]
  4. SOLOSTAR [Concomitant]

REACTIONS (1)
  - Cardiac failure [Not Recovered/Not Resolved]
